FAERS Safety Report 8029535-X (Version None)
Quarter: 2012Q1

REPORT INFORMATION
  Report Type: 
  Country: None (occurrence: None)
  Receive Date: 20120109
  Receipt Date: 20120102
  Transmission Date: 20120608
  Serious: Yes (Hospitalization)
  Sender: FDA-Public Use
  Company Number: JP-ACCORD-011931

PATIENT
  Age: 70 Year
  Sex: Male

DRUGS (3)
  1. DOCETAXEL [Suspect]
     Indication: GASTRIC CANCER
  2. CISPLATIN [Suspect]
     Indication: GASTRIC CANCER
  3. ANTINEOPLASTIC AGENTS [Suspect]
     Indication: GASTRIC CANCER

REACTIONS (3)
  - INFECTIOUS PERITONITIS [None]
  - OFF LABEL USE [None]
  - GASTRIC PERFORATION [None]
